FAERS Safety Report 10227290 (Version 1)
Quarter: 2014Q2

REPORT INFORMATION
  Report Type: Spontaneous
  Country: US (occurrence: None)
  Receive Date: 20140606
  Receipt Date: 20140606
  Transmission Date: 20141212
  Serious: Yes (Other)
  Sender: FDA-Public Use
  Company Number: C14 029 AE

PATIENT
  Age: 1 Month
  Sex: Female
  Weight: 3.58 kg

DRUGS (2)
  1. FIRST OMEPRAZOLE RX [Suspect]
     Indication: GASTROOESOPHAGEAL REFLUX DISEASE
     Route: 048
     Dates: start: 20140522, end: 20140529
  2. ALIMENTUM [Concomitant]

REACTIONS (4)
  - Chromaturia [None]
  - Urine odour abnormal [None]
  - Crying [None]
  - Anxiety [None]
